FAERS Safety Report 25656223 (Version 1)
Quarter: 2025Q3

REPORT INFORMATION
  Report Type: Spontaneous
  Country: CH (occurrence: CH)
  Receive Date: 20250807
  Receipt Date: 20250807
  Transmission Date: 20251021
  Serious: Yes (Hospitalization)
  Sender: EISAI
  Company Number: CH-Eisai-EC-2025-194538

PATIENT
  Age: 75 Year
  Sex: Female

DRUGS (1)
  1. ARICEPT [Suspect]
     Active Substance: DONEPEZIL HYDROCHLORIDE
     Indication: Dementia Alzheimer^s type
     Dosage: FREQ:24 H, YES NO NA #1 ) 15 DAYS
     Dates: start: 202507, end: 20250722

REACTIONS (4)
  - Bradycardia [Unknown]
  - Presyncope [Unknown]
  - Malaise [Unknown]
  - Asthenia [Unknown]

NARRATIVE: CASE EVENT DATE: 20250701
